FAERS Safety Report 23086302 (Version 1)
Quarter: 2023Q4

REPORT INFORMATION
  Report Type: Spontaneous
  Country: US (occurrence: US)
  Receive Date: 20231019
  Receipt Date: 20231019
  Transmission Date: 20240110
  Serious: Yes (Other)
  Sender: FDA-Public Use
  Company Number: US-BAYER-2023A147828

PATIENT
  Age: 43 Year
  Sex: Male

DRUGS (2)
  1. XARELTO [Suspect]
     Active Substance: RIVAROXABAN
     Indication: Product used for unknown indication
     Route: 048
  2. HEPARIN [Concomitant]
     Active Substance: HEPARIN SODIUM

REACTIONS (7)
  - Adrenal haemorrhage [Unknown]
  - Adrenal insufficiency [Unknown]
  - Acute myocardial infarction [Unknown]
  - Back pain [Unknown]
  - Chest pain [Unknown]
  - Tachycardia [Unknown]
  - Blood pressure decreased [Recovered/Resolved]
